FAERS Safety Report 16573199 (Version 1)
Quarter: 2019Q3

REPORT INFORMATION
  Report Type: Spontaneous
  Country: US (occurrence: US)
  Receive Date: 20190715
  Receipt Date: 20190715
  Transmission Date: 20191004
  Serious: Yes (Other)
  Sender: FDA-Public Use
  Company Number: US-PFIZER INC-2019292979

PATIENT

DRUGS (2)
  1. ALLOFERIN [Suspect]
     Active Substance: ALCURONIUM CHLORIDE
     Dosage: UNK
  2. FENTANYL CITRATE. [Suspect]
     Active Substance: FENTANYL CITRATE
     Dosage: 2 ML, UNK
     Route: 008

REACTIONS (1)
  - Anaphylactic shock [Unknown]
